FAERS Safety Report 5666541-4 (Version None)
Quarter: 2008Q1

REPORT INFORMATION
  Report Type: 
  Country: None (occurrence: None)
  Receive Date: 20080314
  Receipt Date: 20071214
  Transmission Date: 20080703
  Serious: No
  Sender: FDA-Public Use
  Company Number: US-ABBOTT-07P-163-0430949-00

PATIENT
  Sex: Female
  Weight: 63.56 kg

DRUGS (4)
  1. HUMIRA [Suspect]
     Indication: PSORIASIS
     Route: 058
     Dates: start: 20071003
  2. IBUPROFEN [Concomitant]
     Indication: HEADACHE
  3. IBUPROFEN [Concomitant]
     Indication: SINUS HEADACHE
  4. TOPICAL STEROID [Concomitant]
     Indication: PSORIASIS

REACTIONS (4)
  - JOINT SWELLING [None]
  - OEDEMA PERIPHERAL [None]
  - PSORIASIS [None]
  - SWELLING FACE [None]
